FAERS Safety Report 15951236 (Version 2)
Quarter: 2019Q2

REPORT INFORMATION
  Report Type: Spontaneous
  Country: CA (occurrence: CA)
  Receive Date: 20190212
  Receipt Date: 20190424
  Transmission Date: 20190711
  Serious: Yes (Other)
  Sender: FDA-Public Use
  Company Number: CA-PFIZER INC-2017279053

PATIENT
  Age: 39 Year
  Sex: Female

DRUGS (5)
  1. DOSTINEX [Concomitant]
     Active Substance: CABERGOLINE
     Dosage: UNK
     Route: 065
  2. SOMAVERT [Suspect]
     Active Substance: PEGVISOMANT
     Indication: ACROMEGALY
     Dosage: 20 MG, DAILY
     Route: 058
     Dates: start: 20120210
  3. CALCIUM CARBONATE. [Concomitant]
     Active Substance: CALCIUM CARBONATE
     Dosage: UNK
     Route: 065
  4. SYNTHROID [Concomitant]
     Active Substance: LEVOTHYROXINE SODIUM
     Dosage: UNK
     Route: 065
  5. PANTOLOC [PANTOPRAZOLE SODIUM SESQUIHYDRATE] [Concomitant]
     Active Substance: PANTOPRAZOLE SODIUM
     Dosage: UNK
     Route: 065

REACTIONS (6)
  - Injection site pain [Unknown]
  - Drug ineffective [Unknown]
  - Poor quality product administered [Unknown]
  - Injection site haemorrhage [Unknown]
  - Skeletal dysplasia [Unknown]
  - Product administration error [Unknown]

NARRATIVE: CASE EVENT DATE: 20171204
